FAERS Safety Report 9550639 (Version 2)
Quarter: 2014Q2

REPORT INFORMATION
  Report Type: Spontaneous
  Country: US (occurrence: US)
  Receive Date: 20130924
  Receipt Date: 20140402
  Transmission Date: 20141212
  Serious: No
  Sender: FDA-Public Use
  Company Number: US-SANOFI-AVENTIS-2013SA010624

PATIENT
  Age: 44 Year
  Sex: Female
  Weight: 66 kg

DRUGS (6)
  1. AUBAGIO [Suspect]
     Indication: MULTIPLE SCLEROSIS
     Route: 048
     Dates: start: 20121220
  2. AUBAGIO [Suspect]
     Indication: MULTIPLE SCLEROSIS
     Route: 048
  3. NEURONTIN [Concomitant]
  4. RASPBERRY LEAF [Concomitant]
  5. AMANTADINE [Concomitant]
  6. VITAMIN D [Concomitant]
     Dosage: DOSE:400 UNIT(S)

REACTIONS (5)
  - Abdominal pain [Unknown]
  - Abdominal pain [Unknown]
  - Faeces soft [Unknown]
  - Nausea [Unknown]
  - Drug dose omission [Unknown]
